FAERS Safety Report 21839570 (Version 1)
Quarter: 2023Q1

REPORT INFORMATION
  Report Type: Spontaneous
  Country: FR (occurrence: FR)
  Receive Date: 20230109
  Receipt Date: 20230109
  Transmission Date: 20230418
  Serious: No
  Sender: FDA-Public Use
  Company Number: None

PATIENT
  Age: 41 Year
  Sex: Female

DRUGS (1)
  1. CYCLOPHOSPHAMIDE [Suspect]
     Active Substance: CYCLOPHOSPHAMIDE
     Indication: Product prescribing error
     Dosage: 2 DOSAGE FORM, QD
     Route: 048
     Dates: end: 20221017

REACTIONS (3)
  - Product prescribing error [Recovered/Resolved]
  - Lymphocyte count decreased [Not Recovered/Not Resolved]
  - Fatigue [Not Recovered/Not Resolved]
